FAERS Safety Report 5643427-2 (Version None)
Quarter: 2008Q1

REPORT INFORMATION
  Report Type: 
  Country: None (occurrence: None)
  Receive Date: 20080131
  Receipt Date: 20071226
  Transmission Date: 20080703
  Serious: Yes (Hospitalization)
  Sender: FDA-Public Use
  Company Number: 163-21880-07111033

PATIENT
  Age: 69 Year
  Sex: Male
  Weight: 85.2762 kg

DRUGS (14)
  1. REVLIMID [Suspect]
     Indication: MULTIPLE MYELOMA
     Dosage: 25 MG, 1 IN 1 D, ORAL
     Route: 048
     Dates: start: 20071023, end: 20071108
  2. REVLIMID [Suspect]
  3. DECADRON [Concomitant]
  4. AMLODIPINE [Concomitant]
  5. FLOMAX [Concomitant]
  6. GLIMIPERIDE (GLIBENCLAMIDE) [Concomitant]
  7. HYZAAR [Concomitant]
  8. JANUVIA (SITAGLIPTIN PHOSPHATE) [Concomitant]
  9. XANAX [Concomitant]
  10. DARVOCET [Concomitant]
  11. AZO-STANDARD (PHENAZOPYRIDINE HYDROCHLORIDE) [Concomitant]
  12. NORVASK (AMLODIPINE) [Concomitant]
  13. ASPIRIN [Concomitant]
  14. WARFARIN SODIUM [Concomitant]

REACTIONS (5)
  - CEREBROVASCULAR ACCIDENT [None]
  - HEMIPLEGIA [None]
  - MUSCULAR WEAKNESS [None]
  - PARAESTHESIA [None]
  - WEIGHT DECREASED [None]
